FAERS Safety Report 8381311-4 (Version None)
Quarter: 2012Q2

REPORT INFORMATION
  Report Type: 
  Country: None (occurrence: None)
  Receive Date: 20120523
  Receipt Date: 20120521
  Transmission Date: 20120825
  Serious: Yes (Hospitalization, Other)
  Sender: FDA-Public Use
  Company Number: BR-PFIZER INC-2012110815

PATIENT
  Age: 55 Year
  Sex: Female
  Weight: 71 kg

DRUGS (4)
  1. DIOVAN [Concomitant]
  2. METFORMIN [Concomitant]
  3. PRISTIQ [Suspect]
     Indication: DEPRESSION
     Dosage: 50 MG, 1X/DAY
     Route: 048
     Dates: start: 20080101, end: 20120430
  4. CLONAZEPAM [Concomitant]
     Dosage: OCCASIONALLY

REACTIONS (6)
  - GAIT DISTURBANCE [None]
  - FATIGUE [None]
  - REFLUX GASTRITIS [None]
  - ABDOMINAL PAIN UPPER [None]
  - MUSCULAR WEAKNESS [None]
  - WEIGHT INCREASED [None]
